FAERS Safety Report 10260892 (Version 3)
Quarter: 2014Q3

REPORT INFORMATION
  Report Type: Spontaneous
  Country: BE (occurrence: BE)
  Receive Date: 20140626
  Receipt Date: 20140703
  Transmission Date: 20150326
  Serious: Yes (Life-Threatening, Hospitalization)
  Sender: FDA-Public Use
  Company Number: PHHY2014BE075654

PATIENT
  Age: 70 Year
  Sex: Female

DRUGS (10)
  1. MEDROL [Concomitant]
     Active Substance: METHYLPREDNISOLONE
     Indication: RHEUMATOID ARTHRITIS
     Dosage: 4 MG, QD
     Route: 048
     Dates: start: 20121025
  2. ADENURIC [Concomitant]
     Active Substance: FEBUXOSTAT
     Indication: HYPERURICAEMIA
     Dosage: 80 MG, QD
     Route: 048
     Dates: start: 20121025
  3. CO-BISOPROLOL [Concomitant]
     Indication: HYPERTENSION
     Dosage: 10/25 MG, QD
     Route: 048
     Dates: start: 20100722
  4. PRAREDUCT [Concomitant]
     Indication: HYPERCHOLESTEROLAEMIA
     Dosage: 40 MG, QD
     Route: 048
     Dates: start: 20080919
  5. COVERAM [Concomitant]
     Active Substance: AMLODIPINE\PERINDOPRIL
     Indication: HYPERTENSION
     Dosage: UNK, QD
     Route: 048
     Dates: start: 20090722
  6. ASAFLOW [Concomitant]
     Active Substance: ASPIRIN
     Indication: CEREBROVASCULAR ACCIDENT
     Dosage: 80 MG, BID
     Route: 048
     Dates: start: 20080914
  7. STEOVIT D3 [Concomitant]
     Indication: OSTEOPOROSIS
     Dosage: UNK, QD
     Route: 048
     Dates: start: 20090421
  8. MOXON [Concomitant]
     Indication: HYPERTENSION
     Dosage: 0.4 MG, BID
     Route: 048
     Dates: start: 20110124
  9. ACLASTA [Suspect]
     Active Substance: ZOLEDRONIC ACID
     Indication: OSTEOPOROSIS
     Dosage: 5 MG, UNK
     Route: 042
     Dates: start: 20140507
  10. KALEORID [Concomitant]
     Active Substance: POTASSIUM CHLORIDE
     Dosage: 1000 MG, QD
     Route: 048

REACTIONS (7)
  - Arthralgia [Recovered/Resolved]
  - Dizziness [Recovered/Resolved]
  - Hypotension [Recovered/Resolved]
  - Back pain [Recovered/Resolved]
  - Myalgia [Recovered/Resolved]
  - Hyperthermia [Recovered/Resolved]
  - Chills [Recovered/Resolved]

NARRATIVE: CASE EVENT DATE: 20140508
